FAERS Safety Report 17361154 (Version 2)
Quarter: 2020Q1

REPORT INFORMATION
  Report Type: Report from Study
  Country: IT (occurrence: IT)
  Receive Date: 20200203
  Receipt Date: 20200327
  Transmission Date: 20200409
  Serious: Yes (Other)
  Sender: FDA-Public Use
  Company Number: IT-PFIZER INC-2020044799

PATIENT
  Age: 16 Year
  Sex: Female

DRUGS (1)
  1. XANAX [Suspect]
     Active Substance: ALPRAZOLAM
     Dosage: 10 DF, SINGLE
     Route: 048
     Dates: start: 20191229, end: 20191229

REACTIONS (4)
  - Sopor [Recovering/Resolving]
  - Intentional overdose [Unknown]
  - Drug abuse [Recovering/Resolving]
  - Poisoning [Recovering/Resolving]

NARRATIVE: CASE EVENT DATE: 20191229
